FAERS Safety Report 17916472 (Version 1)
Quarter: 2020Q2

REPORT INFORMATION
  Report Type: Other
  Country: US (occurrence: US)
  Receive Date: 20200619
  Receipt Date: 20200619
  Transmission Date: 20200714
  Serious: Yes (Hospitalization, Other)
  Sender: FDA-Public Use
  Company Number: US-NEWGEN PHARMACEUTICALS LLC-2086259

PATIENT
  Age: 45 Year
  Sex: Male

DRUGS (1)
  1. AMANTADINE HYDROCHLORIDE. [Suspect]
     Active Substance: AMANTADINE HYDROCHLORIDE
     Indication: DISTURBANCE IN ATTENTION
     Route: 065

REACTIONS (6)
  - Paranoia [Recovered/Resolved]
  - Loss of personal independence in daily activities [Unknown]
  - Delusion of replacement [Recovered/Resolved]
  - Agitation [Recovered/Resolved]
  - Acute psychosis [Recovered/Resolved]
  - Off label use [Unknown]
